FAERS Safety Report 24732897 (Version 2)
Quarter: 2024Q4

REPORT INFORMATION
  Report Type: Report from Study
  Country: KR (occurrence: KR)
  Receive Date: 20241213
  Receipt Date: 20241216
  Transmission Date: 20250114
  Serious: Yes (Death)
  Sender: BIOGEN
  Company Number: KR-BIOGEN-2024BI01293606

PATIENT
  Age: 58 Year
  Sex: Male

DRUGS (10)
  1. TOFERSEN [Suspect]
     Active Substance: TOFERSEN
     Indication: Amyotrophic lateral sclerosis
     Route: 050
     Dates: start: 20231116, end: 20241207
  2. DECAQUINON [Concomitant]
     Indication: Product used for unknown indication
     Route: 050
     Dates: start: 20210621
  3. ACETYLCYSTEINE [Concomitant]
     Active Substance: ACETYLCYSTEINE
     Indication: Product used for unknown indication
     Route: 050
     Dates: start: 20240307
  4. YOORITEK [Concomitant]
     Indication: Product used for unknown indication
     Route: 050
     Dates: start: 20210621
  5. DIHYDROCODEINE [Concomitant]
     Active Substance: DIHYDROCODEINE
     Indication: Product used for unknown indication
     Route: 050
     Dates: start: 20240501
  6. ERDOLANT [Concomitant]
     Indication: Product used for unknown indication
     Route: 050
     Dates: start: 20210621
  7. GLYCOPYRROLATE [Concomitant]
     Active Substance: GLYCOPYRROLATE
     Indication: Product used for unknown indication
     Route: 050
     Dates: start: 20210621
  8. ARONAMIN C PLUS [Concomitant]
     Indication: Product used for unknown indication
     Route: 050
     Dates: start: 20210621
  9. METHYLCOBALAMIN [Concomitant]
     Active Substance: METHYLCOBALAMIN
     Indication: Product used for unknown indication
     Route: 050
     Dates: start: 20210621
  10. MUCOMYST [Concomitant]
     Active Substance: ACETYLCYSTEINE
     Indication: Product used for unknown indication
     Route: 050
     Dates: start: 20240308

REACTIONS (2)
  - Pneumonia [Fatal]
  - Sepsis [Fatal]

NARRATIVE: CASE EVENT DATE: 20241207
